FAERS Safety Report 7178999-2 (Version None)
Quarter: 2010Q4

REPORT INFORMATION
  Report Type: 
  Country: None (occurrence: None)
  Receive Date: 20101221
  Receipt Date: 20101210
  Transmission Date: 20110411
  Serious: Yes (Hospitalization, Disabling)
  Sender: FDA-Public Use
  Company Number: JP-SHIRE-SPV1-2010-02172

PATIENT
  Age: 59 Year
  Sex: Female

DRUGS (15)
  1. LANTHANUM CARBONATE [Suspect]
     Indication: HYPERPHOSPHATAEMIA
     Dosage: 750 MG, OTHER, TOTAL DAILY DOSE
     Route: 048
     Dates: start: 20101108, end: 20101127
  2. ALLEGRA [Suspect]
     Indication: RHINITIS ALLERGIC
     Dosage: 120 MG, OTHER, DAILY
     Route: 048
     Dates: start: 20101014
  3. MUCODYNE [Suspect]
     Indication: RHINITIS ALLERGIC
     Dosage: 1500 MG, OTHER, DAILY
     Route: 048
     Dates: start: 20101014, end: 20101201
  4. MUCODYNE [Suspect]
     Dosage: 750 MG, OTHER, DAILY
     Route: 048
     Dates: start: 20101202
  5. RENIVACE [Concomitant]
     Indication: HYPERTENSION
     Dosage: 5 MG, UNKNOWN
     Route: 048
     Dates: start: 20070605, end: 20101201
  6. RENIVACE [Concomitant]
     Dosage: 2.5 MG, UNKNOWN
     Route: 048
     Dates: start: 20101202
  7. ARTIST [Concomitant]
     Indication: HYPERTENSION
     Dosage: 10 MG, UNKNOWN
     Route: 048
     Dates: start: 20070605, end: 20101201
  8. ARTIST [Concomitant]
     Dosage: 5 MG, UNKNOWN
     Route: 048
     Dates: start: 20101202
  9. ADALAT CC [Concomitant]
     Indication: HYPERTENSION
     Dosage: 20 MG, UNKNOWN
     Route: 048
     Dates: start: 20070531, end: 20101202
  10. ADALAT CC [Concomitant]
     Dosage: 20 MG, UNKNOWN
     Route: 048
     Dates: start: 20101209
  11. SALOBEL [Concomitant]
     Indication: HYPERURICAEMIA
     Dosage: 100 MG, UNKNOWN
     Route: 048
     Dates: start: 20070531, end: 20101202
  12. MEVALOTIN [Concomitant]
     Indication: HYPERLIPIDAEMIA
     Dosage: 10 MG, UNKNOWN
     Route: 048
     Dates: start: 20070531
  13. LASIX [Concomitant]
     Indication: HYPERTENSION
     Dosage: 60 MG, UNKNOWN
     Route: 048
     Dates: start: 20081007, end: 20101202
  14. PARIET [Concomitant]
     Indication: PROPHYLAXIS AGAINST GASTROINTESTINAL ULCER
     Dosage: 10 MG, UNKNOWN
     Route: 048
     Dates: start: 20080108
  15. ARGAMATE [Concomitant]
     Indication: HYPERKALAEMIA
     Dosage: 75 G, UNKNOWN
     Route: 048
     Dates: start: 20100616, end: 20101202

REACTIONS (1)
  - VISUAL IMPAIRMENT [None]
